FAERS Safety Report 4411553-1 (Version None)
Quarter: 2004Q3

REPORT INFORMATION
  Report Type: 
  Country: None (occurrence: None)
  Receive Date: 20040730
  Receipt Date: 20030730
  Transmission Date: 20050211
  Serious: Yes (Hospitalization)
  Sender: FDA-Public Use
  Company Number: US-MERCK-0307USA03455

PATIENT
  Age: 61 Year
  Sex: Female
  Weight: 121 kg

DRUGS (16)
  1. TYLENOL [Concomitant]
     Indication: OSTEOARTHRITIS
     Route: 065
  2. PARAFON FORTE [Concomitant]
     Indication: OSTEOARTHRITIS
     Route: 065
  3. PROVENTIL [Concomitant]
     Indication: BRONCHITIS
     Route: 055
  4. ASPIRIN [Concomitant]
     Indication: OSTEOARTHRITIS
     Route: 065
  5. LIORESAL [Concomitant]
     Indication: OSTEOARTHRITIS
     Route: 065
  6. VALIUM [Concomitant]
     Indication: MUSCLE RELAXANT THERAPY
     Route: 065
  7. DEMEROL [Concomitant]
     Indication: OSTEOARTHRITIS
     Route: 065
  8. DITROPAN [Concomitant]
     Indication: NEUROGENIC BLADDER
     Route: 065
  9. INDERAL [Concomitant]
     Indication: SUPRAVENTRICULAR EXTRASYSTOLES
     Route: 065
  10. VIOXX [Suspect]
     Indication: BURSITIS
     Route: 048
     Dates: start: 20011029, end: 20011030
  11. VIOXX [Suspect]
     Route: 048
     Dates: start: 20011101, end: 20011109
  12. VIOXX [Suspect]
     Route: 048
     Dates: start: 20011110, end: 20011122
  13. VIOXX [Suspect]
     Indication: BACK PAIN
     Route: 048
     Dates: start: 20011029, end: 20011030
  14. VIOXX [Suspect]
     Route: 048
     Dates: start: 20011101, end: 20011109
  15. VIOXX [Suspect]
     Route: 048
     Dates: start: 20011110, end: 20011122
  16. SEREVENT [Concomitant]
     Indication: BRONCHITIS
     Route: 055

REACTIONS (20)
  - ANGINA PECTORIS [None]
  - ARTHRALGIA [None]
  - BLADDER SPASM [None]
  - BRONCHIAL INFECTION [None]
  - CERVICOBRACHIAL SYNDROME [None]
  - CHOLELITHIASIS [None]
  - CONTUSION [None]
  - DYSURIA [None]
  - EMBOLIC STROKE [None]
  - EMOTIONAL DISTRESS [None]
  - FALL [None]
  - HYPERTENSION [None]
  - JOINT INJURY [None]
  - MIGRAINE [None]
  - MYOFASCIAL PAIN SYNDROME [None]
  - NERVE COMPRESSION [None]
  - OEDEMA PERIPHERAL [None]
  - POLLAKIURIA [None]
  - ROTATOR CUFF SYNDROME [None]
  - URINARY TRACT INFECTION [None]
